FAERS Safety Report 12926008 (Version 1)
Quarter: 2016Q4

REPORT INFORMATION
  Report Type: Spontaneous
  Country: US (occurrence: US)
  Receive Date: 20161108
  Receipt Date: 20161108
  Transmission Date: 20170207
  Serious: No
  Sender: FDA-Public Use
  Company Number: US-SA-2016SA181532

PATIENT
  Age: 83 Year
  Sex: Male

DRUGS (4)
  1. PRALUENT [Suspect]
     Active Substance: ALIROCUMAB
     Route: 065
  2. ALIROCUMAB PREFILLED PEN [Concomitant]
     Active Substance: ALIROCUMAB
     Route: 065
  3. AMOXICILLIN/CLAVULANATE POTASSIUM [Concomitant]
     Dosage: TAB 500-125
     Route: 065
  4. CITALOPRAM [Concomitant]
     Active Substance: CITALOPRAM HYDROBROMIDE
     Dosage: TAB 20 MG
     Route: 065

REACTIONS (3)
  - Influenza like illness [Unknown]
  - Confusional state [Unknown]
  - Depressed mood [Unknown]
